FAERS Safety Report 7728208-8 (Version None)
Quarter: 2011Q3

REPORT INFORMATION
  Report Type: 
  Country: None (occurrence: None)
  Receive Date: 20110905
  Receipt Date: 20110822
  Transmission Date: 20111222
  Serious: Yes (Other)
  Sender: FDA-Public Use
  Company Number: PHHY2011US35462

PATIENT
  Sex: Male

DRUGS (5)
  1. AMLODIPINE [Concomitant]
     Dosage: 2.5 MG, UNK
  2. BYSTOLIC [Concomitant]
     Dosage: 2.5 MG, UNK
  3. GLEEVEC [Suspect]
     Dosage: 400 MG, BID
     Route: 048
  4. LOVASTATIN [Concomitant]
     Dosage: 10 MG, UNK
  5. MULTI-VITAMINS [Concomitant]

REACTIONS (9)
  - NEPHROLITHIASIS [None]
  - MUSCLE SPASMS [None]
  - EYE SWELLING [None]
  - JOINT SWELLING [None]
  - NAUSEA [None]
  - ANAEMIA [None]
  - DIARRHOEA [None]
  - RASH [None]
  - BONE PAIN [None]
